FAERS Safety Report 4408853-8 (Version None)
Quarter: 2004Q3

REPORT INFORMATION
  Report Type: 
  Country: None (occurrence: None)
  Receive Date: 20040727
  Receipt Date: 20040722
  Transmission Date: 20050211
  Serious: Yes (Hospitalization, Other)
  Sender: FDA-Public Use
  Company Number: US-GLAXOSMITHKLINE-A0519387A

PATIENT
  Age: 8 Year
  Sex: Female

DRUGS (2)
  1. ADVAIR DISKUS 100/50 [Suspect]
     Indication: ASTHMA
     Dosage: 1PUFF TWICE PER DAY
     Route: 055
     Dates: end: 20040101
  2. UNSPECIFIED MEDICATION [Concomitant]

REACTIONS (3)
  - COLLAPSE OF LUNG [None]
  - CREPITATIONS [None]
  - LUNG INJURY [None]
